FAERS Safety Report 12929879 (Version 2)
Quarter: 2017Q1

REPORT INFORMATION
  Report Type: Spontaneous
  Country: US (occurrence: US)
  Receive Date: 20161110
  Receipt Date: 20170331
  Transmission Date: 20170428
  Serious: No
  Sender: FDA-Public Use
  Company Number: US-ASTRAZENECA-2016SF15329

PATIENT
  Sex: Female

DRUGS (3)
  1. TUDORZA PRESSAIR [Suspect]
     Active Substance: ACLIDINIUM BROMIDE
     Dosage: 400.0UG UNKNOWN
     Route: 055
     Dates: start: 20170310
  2. SYMBICORT [Suspect]
     Active Substance: BUDESONIDE\FORMOTEROL FUMARATE DIHYDRATE
     Indication: DYSPNOEA
     Dosage: TWICE A DAY
     Route: 055
  3. SYMBICORT [Suspect]
     Active Substance: BUDESONIDE\FORMOTEROL FUMARATE DIHYDRATE
     Indication: DYSPNOEA
     Dosage: ONCE A DAY
     Route: 055
     Dates: start: 2013

REACTIONS (11)
  - Device malfunction [Unknown]
  - Hypotension [Unknown]
  - Incorrect dosage administered [Recovered/Resolved]
  - Weight increased [Unknown]
  - Productive cough [Unknown]
  - Adrenal disorder [Unknown]
  - Intentional device misuse [Unknown]
  - Hypersensitivity [Unknown]
  - Sinus disorder [Unknown]
  - Fall [Unknown]
  - Hormone level abnormal [Unknown]
